FAERS Safety Report 11859618 (Version 1)
Quarter: 2015Q4

REPORT INFORMATION
  Report Type: Spontaneous
  Country: US (occurrence: US)
  Receive Date: 20151221
  Receipt Date: 20151221
  Transmission Date: 20160305
  Serious: Yes (Hospitalization, Other)
  Sender: FDA-Public Use
  Company Number: US-JNJFOC-20151213148

PATIENT
  Sex: Male
  Weight: 81 kg

DRUGS (1)
  1. EDURANT [Suspect]
     Active Substance: RILPIVIRINE HYDROCHLORIDE
     Indication: HIV INFECTION
     Route: 048

REACTIONS (4)
  - Treatment noncompliance [Unknown]
  - Haemodialysis [Unknown]
  - Hospitalisation [Unknown]
  - Off label use [Unknown]
